FAERS Safety Report 6930620-1 (Version None)
Quarter: 2010Q3

REPORT INFORMATION
  Report Type: 
  Country: None (occurrence: None)
  Receive Date: 20100818
  Receipt Date: 20100813
  Transmission Date: 20110219
  Serious: Yes (Hospitalization)
  Sender: FDA-Public Use
  Company Number: ES-MERCK-1008ESP00009

PATIENT
  Age: 87 Year
  Sex: Female

DRUGS (14)
  1. INVANZ [Suspect]
     Indication: URINARY TRACT INFECTION
     Route: 042
     Dates: start: 20100727, end: 20100803
  2. ACENOCOUMAROL [Concomitant]
     Indication: ATRIAL FIBRILLATION
     Route: 065
  3. ACENOCOUMAROL [Concomitant]
     Indication: CARDIOMYOPATHY
     Route: 065
  4. PREDNISONE [Concomitant]
     Route: 065
  5. CALCIUM (UNSPECIFIED) [Concomitant]
     Route: 065
  6. AMIODARONE HYDROCHLORIDE [Concomitant]
     Route: 065
  7. FERROUS GLYCINE SULFATE [Concomitant]
     Route: 065
  8. FUROSEMIDE [Concomitant]
     Indication: RENAL FAILURE CHRONIC
     Route: 065
  9. METHOXY POLYETHYLENE GLYCOL-EPOETIN BETA [Concomitant]
     Route: 065
  10. PAROXETINE HYDROCHLORIDE [Concomitant]
     Route: 065
  11. ALPRAZOLAM [Concomitant]
     Indication: SLEEP DISORDER
     Route: 065
  12. CARVEDILOL [Concomitant]
     Route: 065
  13. ATORVASTATIN CALCIUM [Concomitant]
     Route: 065
  14. ALENDRONATE SODIUM AND CHOLECALCIFEROL [Concomitant]
     Route: 065

REACTIONS (4)
  - CONFUSIONAL STATE [None]
  - HALLUCINATION, VISUAL [None]
  - MUSCULAR WEAKNESS [None]
  - TREMOR [None]
